FAERS Safety Report 24282229 (Version 1)
Quarter: 2024Q3

REPORT INFORMATION
  Report Type: Spontaneous
  Country: US (occurrence: None)
  Receive Date: 20240902
  Receipt Date: 20240902
  Transmission Date: 20241017
  Serious: Yes (Life-Threatening, Hospitalization)
  Sender: Public
  Company Number: None

PATIENT
  Age: 66 Year
  Sex: Male
  Weight: 90 kg

DRUGS (4)
  1. MIRALAX [Suspect]
     Active Substance: POLYETHYLENE GLYCOL 3350
     Indication: Small intestinal obstruction
     Dates: start: 20230817, end: 20230822
  2. Travaprost [Concomitant]
  3. VITAMIN D3 [Concomitant]
     Active Substance: CHOLECALCIFEROL
  4. VITAMIN B12 [Concomitant]
     Active Substance: CYANOCOBALAMIN

REACTIONS (5)
  - Vomiting [None]
  - Pulmonary oedema [None]
  - Acute respiratory distress syndrome [None]
  - Near death experience [None]
  - Foreign body aspiration [None]

NARRATIVE: CASE EVENT DATE: 20230817
